FAERS Safety Report 5136245-5 (Version None)
Quarter: 2006Q4

REPORT INFORMATION
  Report Type: 
  Country: None (occurrence: None)
  Receive Date: 20061027
  Receipt Date: 20060721
  Transmission Date: 20070319
  Serious: Yes (Other)
  Sender: FDA-Public Use
  Company Number: GB-NOVOPROD-255328

PATIENT
  Age: 37 Year
  Sex: Female
  Weight: 118 kg

DRUGS (3)
  1. LEVEMIR [Suspect]
     Indication: DIABETES MELLITUS
     Dosage: 14 IU, QD
     Route: 058
     Dates: start: 20060605, end: 20060914
  2. ATORVASTATIN CALCIUM [Concomitant]
     Dosage: 10 MG, QD
     Route: 048
  3. FRUSEMIDE                          /00032601/ [Concomitant]
     Dosage: 20 MG, QD
     Route: 048

REACTIONS (2)
  - CLUSTER HEADACHE [None]
  - CONDITION AGGRAVATED [None]
